FAERS Safety Report 8370948-4 (Version None)
Quarter: 2012Q2

REPORT INFORMATION
  Report Type: 
  Country: None (occurrence: None)
  Receive Date: 20120518
  Receipt Date: 20120515
  Transmission Date: 20120825
  Serious: Yes (Other)
  Sender: FDA-Public Use
  Company Number: JP-PFIZER INC-2012118378

PATIENT
  Age: 78 Year
  Sex: Male

DRUGS (7)
  1. VOLTAREN [Concomitant]
     Dosage: 1 DF, 2X/DAY
     Route: 048
  2. AMLODIPINE [Concomitant]
     Dosage: 2.5 MG, 1X/DAY
     Route: 048
  3. LYRICA [Suspect]
     Indication: HYPOAESTHESIA
     Dosage: 75 MG, 1X/DAY
     Route: 048
     Dates: start: 20120405
  4. CARBAMAZEPINE [Concomitant]
     Dosage: 100 MG, 1X/DAY
  5. RABEPRAZOLE SODIUM [Concomitant]
     Dosage: 10 MG, 1X/DAY
     Route: 048
  6. EPLERENONE [Concomitant]
     Dosage: UNK
  7. MUCOSTA [Concomitant]
     Dosage: 1 DF, 3X/DAY

REACTIONS (1)
  - BLOOD PRESSURE INCREASED [None]
